FAERS Safety Report 6772655-8 (Version None)
Quarter: 2010Q2

REPORT INFORMATION
  Report Type: 
  Country: None (occurrence: None)
  Receive Date: 20100616
  Receipt Date: 20091117
  Transmission Date: 20101027
  Serious: No
  Sender: FDA-Public Use
  Company Number: US-ASTRAZENECA-2009SE27025

PATIENT
  Age: 72 Year
  Sex: Male
  Weight: 88.5 kg

DRUGS (3)
  1. PULMICORT RESPULES [Suspect]
     Route: 055
     Dates: start: 20091111
  2. BROVANA [Concomitant]
  3. CLONAZEPAM [Concomitant]

REACTIONS (1)
  - DIZZINESS [None]
